FAERS Safety Report 6447258-5 (Version None)
Quarter: 2009Q4

REPORT INFORMATION
  Report Type: 
  Country: None (occurrence: None)
  Receive Date: 20091119
  Receipt Date: 20091119
  Transmission Date: 20100525
  Serious: Yes (Other)
  Sender: FDA-Public Use
  Company Number: US-PFIZER INC-2009258721

PATIENT
  Sex: Female
  Weight: 58.957 kg

DRUGS (4)
  1. LYRICA [Suspect]
     Indication: SCIATICA
     Dosage: 150 MG, 2X/DAY
     Dates: start: 20090601
  2. GABAPENTIN [Suspect]
     Indication: SCIATICA
     Dosage: UNK
     Dates: start: 20080501
  3. NAPROXEN SODIUM [Concomitant]
     Dosage: EVERY 8 HOURS
  4. MOTRIN [Concomitant]
     Dosage: UNK

REACTIONS (6)
  - DRUG INEFFECTIVE [None]
  - DRY MOUTH [None]
  - ILL-DEFINED DISORDER [None]
  - INTERVERTEBRAL DISC PROTRUSION [None]
  - SEDATION [None]
  - VISION BLURRED [None]
